FAERS Safety Report 24267619 (Version 1)
Quarter: 2024Q3

REPORT INFORMATION
  Report Type: Spontaneous
  Country: CA (occurrence: CA)
  Receive Date: 20240830
  Receipt Date: 20240830
  Transmission Date: 20241016
  Serious: Yes (Other)
  Sender: ACCORD
  Company Number: None

PATIENT
  Age: 8 Year
  Sex: Female
  Weight: 28 kg

DRUGS (3)
  1. MONTELUKAST [Suspect]
     Active Substance: MONTELUKAST SODIUM
     Indication: Idiopathic urticaria
     Route: 065
  2. CYCLOSPORINE [Suspect]
     Active Substance: CYCLOSPORINE
     Indication: Urticaria
     Dosage: 2 EVERY 1 DAY
     Route: 048
  3. REACTINE [Concomitant]
     Indication: Product used for unknown indication
     Dosage: 1 EVERY 1 DAY
     Route: 065

REACTIONS (4)
  - Angioedema [Unknown]
  - Off label use [Unknown]
  - Chronic spontaneous urticaria [Unknown]
  - Drug ineffective [Unknown]
